FAERS Safety Report 17202951 (Version 2)
Quarter: 2020Q1

REPORT INFORMATION
  Report Type: Spontaneous
  Country: US (occurrence: US)
  Receive Date: 20191226
  Receipt Date: 20200127
  Transmission Date: 20200409
  Serious: No
  Sender: FDA-Public Use
  Company Number: US-PFIZER INC-2019553459

PATIENT
  Age: 50 Year
  Sex: Male
  Weight: 86.18 kg

DRUGS (1)
  1. VIAGRA [Suspect]
     Active Substance: SILDENAFIL CITRATE
     Indication: ERECTILE DYSFUNCTION
     Dosage: 100 MG, AS NEEDED(100MG BLUE TABLET BY MOUTH AS NEEDED)
     Route: 048
     Dates: start: 201801, end: 201908

REACTIONS (2)
  - Malaise [Unknown]
  - Nerve injury [Unknown]
